FAERS Safety Report 7372056-8 (Version None)
Quarter: 2011Q1

REPORT INFORMATION
  Report Type: 
  Country: None (occurrence: None)
  Receive Date: 20110324
  Receipt Date: 20110315
  Transmission Date: 20110831
  Serious: Yes (Death, Hospitalization, Other)
  Sender: FDA-Public Use
  Company Number: US-NAPPMUNDI-USA-2011-0065461

PATIENT
  Age: 49 Year
  Sex: Female
  Weight: 39.456 kg

DRUGS (5)
  1. LEVAQUIN [Suspect]
     Indication: PRODUCT USED FOR UNKNOWN INDICATION
     Dosage: UNK
     Dates: start: 20100810
  2. MORPHINE SULFATE [Suspect]
     Indication: PRODUCT USED FOR UNKNOWN INDICATION
     Dosage: UNK UNK, SEE TEXT
  3. ZOSYN [Suspect]
     Indication: PRODUCT USED FOR UNKNOWN INDICATION
     Dosage: 500 MG, UNK
     Dates: start: 20100801
  4. OXYQUINOLINE SULFATE [Suspect]
     Indication: PRODUCT USED FOR UNKNOWN INDICATION
     Dosage: UNK
  5. DILAUDID [Suspect]
     Indication: PRODUCT USED FOR UNKNOWN INDICATION
     Dosage: UNK UNK, SEE TEXT

REACTIONS (23)
  - PNEUMONIA [None]
  - DRUG HYPERSENSITIVITY [None]
  - OEDEMA [None]
  - HOSPITALISATION [None]
  - JAUNDICE [None]
  - BACK PAIN [None]
  - ABDOMINAL DISTENSION [None]
  - GRIEF REACTION [None]
  - VAGINAL HAEMORRHAGE [None]
  - PULMONARY EMBOLISM [None]
  - CONTUSION [None]
  - MUSCULAR WEAKNESS [None]
  - DECREASED APPETITE [None]
  - BEDRIDDEN [None]
  - MOANING [None]
  - DEATH [None]
  - CENTRAL NERVOUS SYSTEM LESION [None]
  - LUNG DISORDER [None]
  - VIRAL INFECTION [None]
  - URINARY TRACT INFECTION [None]
  - OEDEMA PERIPHERAL [None]
  - WEIGHT DECREASED [None]
  - GENERAL PHYSICAL HEALTH DETERIORATION [None]
